FAERS Safety Report 4339152-0 (Version None)
Quarter: 2004Q2

REPORT INFORMATION
  Report Type: 
  Country: None (occurrence: None)
  Receive Date: 20040412
  Receipt Date: 20040330
  Transmission Date: 20050107
  Serious: Yes (Death)
  Sender: FDA-Public Use
  Company Number: 163-20785-04020503

PATIENT
  Age: 50 Year
  Sex: Male

DRUGS (1)
  1. THALOMID [Suspect]
     Indication: COLON CANCER METASTATIC
     Dosage: 100 MG, DAILY, ORAL
     Route: 048
     Dates: start: 20040126, end: 20040201

REACTIONS (4)
  - COLON CANCER STAGE IV [None]
  - HEPATOMEGALY [None]
  - MALIGNANT NEOPLASM PROGRESSION [None]
  - SEDATION [None]
